FAERS Safety Report 23598354 (Version 1)
Quarter: 2024Q1

REPORT INFORMATION
  Report Type: Spontaneous
  Country: US (occurrence: US)
  Receive Date: 20240305
  Receipt Date: 20240305
  Transmission Date: 20240410
  Serious: No
  Sender: FDA-Public Use
  Company Number: US-009507513-2402USA010141

PATIENT
  Age: 44 Year
  Sex: Male

DRUGS (5)
  1. KEYTRUDA [Suspect]
     Active Substance: PEMBROLIZUMAB
     Indication: Adrenocortical carcinoma
     Dosage: UNK
  2. MITOTANE [Concomitant]
     Active Substance: MITOTANE
     Indication: Adrenocortical carcinoma
     Dosage: UNK
  3. CISPLATIN [Concomitant]
     Active Substance: CISPLATIN
     Indication: Adrenocortical carcinoma
     Dosage: UNK
  4. ETOPOSIDE [Concomitant]
     Active Substance: ETOPOSIDE
     Indication: Adrenocortical carcinoma
     Dosage: UNK
  5. CABOZANTINIB [Concomitant]
     Active Substance: CABOZANTINIB
     Indication: Adrenocortical carcinoma
     Dosage: UNK

REACTIONS (1)
  - Product use in unapproved indication [Unknown]
